FAERS Safety Report 10655339 (Version 1)
Quarter: 2014Q4

REPORT INFORMATION
  Report Type: Spontaneous
  Country: None (occurrence: None)
  Receive Date: 20141215
  Receipt Date: 20141215
  Transmission Date: 20150529
  Serious: No
  Sender: FDA-Public Use
  Company Number: None

PATIENT
  Age: 31 Year
  Sex: Male
  Weight: 77.11 kg

DRUGS (2)
  1. PROAIR HFA [Suspect]
     Active Substance: ALBUTEROL SULFATE
     Indication: BRONCHOSPASM
     Dosage: 2 PUFFS THREE TIMES DAILY
     Route: 055
     Dates: start: 20140501, end: 20141211
  2. PROAIR HFA [Suspect]
     Active Substance: ALBUTEROL SULFATE
     Indication: ASTHMA
     Dosage: 2 PUFFS THREE TIMES DAILY
     Route: 055
     Dates: start: 20140501, end: 20141211

REACTIONS (8)
  - Product quality issue [None]
  - Product odour abnormal [None]
  - Device issue [None]
  - Presyncope [None]
  - Bronchospasm [None]
  - Product substitution issue [None]
  - Product taste abnormal [None]
  - Product solubility abnormal [None]

NARRATIVE: CASE EVENT DATE: 20141211
